APPROVED DRUG PRODUCT: FLOVENT HFA
Active Ingredient: FLUTICASONE PROPIONATE
Strength: 0.22MG/INH
Dosage Form/Route: AEROSOL, METERED;INHALATION
Application: N021433 | Product #001
Applicant: GLAXO GROUP LTD DBA GLAXOSMITHKLINE
Approved: May 14, 2004 | RLD: Yes | RS: Yes | Type: RX

PATENTS:
Patent 7500444 | Expires: Feb 26, 2026
Patent 7500444*PED | Expires: Aug 26, 2026